FAERS Safety Report 5230838-2 (Version None)
Quarter: 2007Q1

REPORT INFORMATION
  Report Type: 
  Country: None (occurrence: None)
  Receive Date: 20070205
  Receipt Date: 20070205
  Transmission Date: 20070707
  Serious: Yes (Hospitalization)
  Sender: FDA-Public Use
  Company Number: None

PATIENT
  Age: 76 Year
  Sex: Male
  Weight: 78 kg

DRUGS (3)
  1. BEVACIZUMAB [Suspect]
     Indication: TONSIL CANCER
     Dosage: 10 MG/KG Q 2 WEEKS IV
     Route: 042
     Dates: start: 20061220
  2. ERLOTINIB HYDROCHLORIDE [Suspect]
     Dosage: 100MG EVERY DAY ORALLY
     Route: 048
     Dates: start: 20061220
  3. RADIATION [Concomitant]

REACTIONS (4)
  - ASTHENIA [None]
  - FATIGUE [None]
  - ORAL INTAKE REDUCED [None]
  - WEIGHT DECREASED [None]
